FAERS Safety Report 18057436 (Version 1)
Quarter: 2020Q3

REPORT INFORMATION
  Report Type: Spontaneous
  Country: JP (occurrence: JP)
  Receive Date: 20200723
  Receipt Date: 20200723
  Transmission Date: 20201103
  Serious: Yes (Hospitalization)
  Sender: FDA-Public Use
  Company Number: JP-009507513-2007JPN001220J

PATIENT
  Age: 88 Year
  Sex: Male

DRUGS (15)
  1. AMLODIN [Concomitant]
     Active Substance: AMLODIPINE BESYLATE
     Dosage: UNK
     Route: 065
  2. CALONAL [Concomitant]
     Active Substance: ACETAMINOPHEN
     Dosage: UNK
     Route: 065
  3. LENDORMIN [Concomitant]
     Active Substance: BROTIZOLAM
     Dosage: UNK
     Route: 065
  4. CRESTOR [Concomitant]
     Active Substance: ROSUVASTATIN CALCIUM
     Dosage: UNK
     Route: 065
  5. DIART [Concomitant]
     Active Substance: AZOSEMIDE
     Dosage: UNK
     Route: 065
  6. MERISLON [Concomitant]
     Active Substance: BETAHISTINE MESILATE
     Dosage: UNK
     Route: 065
  7. LYRICA [Suspect]
     Active Substance: PREGABALIN
     Dosage: 300 MILLIGRAM/DAY
     Route: 065
  8. LYRICA [Suspect]
     Active Substance: PREGABALIN
     Dosage: 150 MILLIGRAM/DAY
     Route: 065
  9. TAKEPRON [Concomitant]
     Active Substance: LANSOPRAZOLE
     Dosage: UNK
     Route: 065
  10. LYRICA [Suspect]
     Active Substance: PREGABALIN
     Dosage: 150 MILLIGRAM/DAY
     Route: 065
  11. JANUVIA [Suspect]
     Active Substance: SITAGLIPTIN PHOSPHATE
     Indication: TYPE 2 DIABETES MELLITUS
     Dosage: UNK
     Route: 048
  12. METGLUCO [Concomitant]
     Active Substance: METFORMIN HYDROCHLORIDE
     Dosage: UNK
     Route: 065
  13. OLMETEC [Concomitant]
     Active Substance: OLMESARTAN MEDOXOMIL
     Dosage: UNK
     Route: 065
  14. HARNAL [Concomitant]
     Active Substance: TAMSULOSIN HYDROCHLORIDE
     Dosage: UNK
     Route: 065
  15. ARICEPT [Concomitant]
     Active Substance: DONEPEZIL HYDROCHLORIDE
     Dosage: UNK
     Route: 065

REACTIONS (1)
  - Dizziness [Recovering/Resolving]
